FAERS Safety Report 9008977 (Version 1)
Quarter: 2013Q1

REPORT INFORMATION
  Report Type: Spontaneous
  Country: US (occurrence: US)
  Receive Date: 20130112
  Receipt Date: 20130112
  Transmission Date: 20140127
  Serious: Yes (Other)
  Sender: FDA-Public Use
  Company Number: US-009507513-0901USA02249

PATIENT
  Age: 12 Year
  Sex: Male
  Weight: 47.63 kg

DRUGS (2)
  1. SINGULAIR [Suspect]
     Indication: ASTHMA
     Dosage: 5 MG, QD (ONE TABLET DAILY AT BEDTIME)
     Route: 048
     Dates: start: 20010603, end: 20080525
  2. SINGULAIR [Suspect]
     Dosage: 10 MG, QD (ONE TABLET DAILY AT BEDTIME)
     Route: 048

REACTIONS (11)
  - Obsessive-compulsive disorder [Unknown]
  - Abnormal behaviour [Recovered/Resolved]
  - Anger [Unknown]
  - Anxiety [Recovered/Resolved]
  - Depression [Unknown]
  - Fear [Unknown]
  - Fear of disease [Unknown]
  - Mood swings [Recovered/Resolved]
  - Screaming [Unknown]
  - Sleep disorder [Recovered/Resolved]
  - Tinnitus [Recovered/Resolved]
